FAERS Safety Report 8588308-X (Version None)
Quarter: 2012Q3

REPORT INFORMATION
  Report Type: 
  Country: None (occurrence: None)
  Receive Date: 20120813
  Receipt Date: 20120730
  Transmission Date: 20120928
  Serious: Yes (Hospitalization)
  Sender: FDA-Public Use
  Company Number: US-ELI_LILLY_AND_COMPANY-US201207001874

PATIENT
  Age: 65 Year
  Sex: Female

DRUGS (3)
  1. CYMBALTA [Suspect]
     Indication: FIBROMYALGIA
     Dosage: 30 MG, QD
     Dates: start: 20120714
  2. COZAAR [Concomitant]
     Indication: DIABETES MELLITUS
  3. METFORMIN HYDROCHLORIDE [Concomitant]
     Indication: DIABETES MELLITUS

REACTIONS (11)
  - INSOMNIA [None]
  - BLOOD PRESSURE ABNORMAL [None]
  - DIZZINESS [None]
  - VERTIGO [None]
  - BLISTER [None]
  - BLOOD GLUCOSE INCREASED [None]
  - HOT FLUSH [None]
  - BALANCE DISORDER [None]
  - NAUSEA [None]
  - HEART RATE DECREASED [None]
  - DRUG WITHDRAWAL SYNDROME [None]
